FAERS Safety Report 22149490 (Version 1)
Quarter: 2023Q1

REPORT INFORMATION
  Report Type: Report from Study
  Country: GB (occurrence: GB)
  Receive Date: 20230329
  Receipt Date: 20230329
  Transmission Date: 20230417
  Serious: Yes (Hospitalization)
  Sender: FDA-Public Use
  Company Number: GB-002147023-NVSC2023GB003401

PATIENT
  Sex: Female

DRUGS (2)
  1. KESIMPTA [Suspect]
     Active Substance: OFATUMUMAB
     Indication: Multiple sclerosis
     Dosage: 20 MG, OTHER, (LOADING DOSE, WEEK 0, 1,2 AND 4 THEN MONTHLY. THIS WAS WEEK 0 (FIRST INJECTION))
     Route: 058
     Dates: start: 20221219
  2. KESIMPTA [Suspect]
     Active Substance: OFATUMUMAB
     Dosage: 20 MG, QMO
     Route: 058

REACTIONS (6)
  - Abscess oral [Recovering/Resolving]
  - Pyrexia [Unknown]
  - Migraine [Unknown]
  - Visual impairment [Not Recovered/Not Resolved]
  - Pyrexia [Recovered/Resolved]
  - Inappropriate schedule of product administration [Unknown]

NARRATIVE: CASE EVENT DATE: 20221219
